FAERS Safety Report 5214986-9 (Version None)
Quarter: 2006Q4

REPORT INFORMATION
  Report Type: 
  Country: None (occurrence: None)
  Receive Date: 20061107
  Receipt Date: 20060714
  Transmission Date: 20070319
  Serious: No
  Sender: FDA-Public Use
  Company Number: 200612804BWH

PATIENT
  Age: 62 Year
  Sex: Male
  Weight: 66.6788 kg

DRUGS (8)
  1. LEVITRA [Suspect]
     Dosage: SEE IMAGE, ORAL
     Route: 048
     Dates: start: 20060101
  2. LEVITRA [Suspect]
     Dosage: SEE IMAGE, ORAL
     Route: 048
     Dates: start: 20060701
  3. ZESTRIL [Concomitant]
  4. GLYBURIDE [Concomitant]
  5. FELODIPINE [Concomitant]
  6. RANITIDINE [Concomitant]
  7. ASPIRIN [Concomitant]
  8. EXTRA STRENGTH TYLENOL [Concomitant]

REACTIONS (10)
  - ABDOMINAL PAIN UPPER [None]
  - BODY TEMPERATURE INCREASED [None]
  - CHEST DISCOMFORT [None]
  - ERUCTATION [None]
  - FLATULENCE [None]
  - HEADACHE [None]
  - HICCUPS [None]
  - NAUSEA [None]
  - RHINORRHOEA [None]
  - SINUS CONGESTION [None]
